FAERS Safety Report 22018732 (Version 1)
Quarter: 2023Q1

REPORT INFORMATION
  Report Type: Spontaneous
  Country: FR (occurrence: FR)
  Receive Date: 20230222
  Receipt Date: 20230222
  Transmission Date: 20230417
  Serious: Yes (Life-Threatening)
  Sender: FDA-Public Use
  Company Number: FR-AFSSAPS-PV2023000132

PATIENT
  Age: 16 Year
  Sex: Female
  Weight: 55 kg

DRUGS (3)
  1. ALPRAZOLAM [Suspect]
     Active Substance: ALPRAZOLAM
     Indication: Intentional overdose
     Dosage: 1.25 MILLIGRAM (5 CPS DE 0.25 MG)
     Route: 048
     Dates: start: 20210831, end: 20210831
  2. VENLAFAXINE [Suspect]
     Active Substance: VENLAFAXINE HYDROCHLORIDE
     Indication: Intentional overdose
     Dosage: 375 MILLIGRAM (5 CPS DE 75 MG)
     Route: 048
     Dates: start: 20210831, end: 20210831
  3. ABILIFY [Suspect]
     Active Substance: ARIPIPRAZOLE
     Indication: Intentional overdose
     Dosage: 10 MILLIGRAM (2 CPS DE 5 MG)
     Route: 048
     Dates: start: 20210831, end: 20210831

REACTIONS (3)
  - Myoclonus [Unknown]
  - Somnolence [Unknown]
  - Intentional overdose [Recovered/Resolved]

NARRATIVE: CASE EVENT DATE: 20210831
